FAERS Safety Report 14330406 (Version 1)
Quarter: 2017Q4

REPORT INFORMATION
  Report Type: Spontaneous
  Country: US (occurrence: US)
  Receive Date: 20171227
  Receipt Date: 20171227
  Transmission Date: 20180321
  Serious: Yes (Other)
  Sender: FDA-Public Use
  Company Number: US-ASTRAZENECA-2005BM01945

PATIENT
  Age: 42 Year
  Sex: Female
  Weight: 93.9 kg

DRUGS (24)
  1. BYETTA [Suspect]
     Active Substance: EXENATIDE
     Indication: TYPE 2 DIABETES MELLITUS
     Route: 058
     Dates: start: 20050830
  2. AMARYL [Concomitant]
     Active Substance: GLIMEPIRIDE
     Indication: TYPE 2 DIABETES MELLITUS
  3. BABY ASPIRIN [Concomitant]
     Active Substance: ASPIRIN
     Indication: HEART RATE INCREASED
     Route: 048
  4. LIPITOR [Concomitant]
     Active Substance: ATORVASTATIN CALCIUM
     Indication: BLOOD CHOLESTEROL INCREASED
     Dosage: 20, MG DAILY, GENERIC
     Route: 048
  5. ANASTROZOLE. [Suspect]
     Active Substance: ANASTROZOLE
     Indication: BREAST CANCER
     Route: 048
     Dates: start: 20171204, end: 20171220
  6. METFORMIN [Concomitant]
     Active Substance: METFORMIN HYDROCHLORIDE
     Indication: DIABETES MELLITUS
     Route: 048
     Dates: start: 2012
  7. EDARBI [Concomitant]
     Active Substance: AZILSARTAN KAMEDOXOMIL
     Indication: HYPERTENSION
     Route: 048
     Dates: start: 2015
  8. COREG [Concomitant]
     Active Substance: CARVEDILOL
     Indication: HEART RATE INCREASED
     Route: 048
  9. COREG [Concomitant]
     Active Substance: CARVEDILOL
     Indication: BLOOD PRESSURE ABNORMAL
     Route: 048
     Dates: start: 2012
  10. ATACAND [Suspect]
     Active Substance: CANDESARTAN CILEXETIL
     Route: 048
  11. RANITIDINE. [Concomitant]
     Active Substance: RANITIDINE
     Indication: GASTROINTESTINAL DISORDER
     Route: 048
  12. VITAMIN D [Concomitant]
     Active Substance: CHOLECALCIFEROL
     Indication: VITAMIN D ABNORMAL
     Route: 048
  13. BABY ASPIRIN [Concomitant]
     Active Substance: ASPIRIN
     Indication: METABOLIC SYNDROME
     Route: 048
  14. COREG [Concomitant]
     Active Substance: CARVEDILOL
     Indication: HEART RATE INCREASED
     Route: 048
  15. ESOMEPRAZOLE [Suspect]
     Active Substance: ESOMEPRAZOLE
     Indication: GASTROINTESTINAL DISORDER
     Route: 048
  16. COREG [Concomitant]
     Active Substance: CARVEDILOL
     Indication: BLOOD PRESSURE ABNORMAL
     Route: 048
  17. COREG [Concomitant]
     Active Substance: CARVEDILOL
     Indication: HEART RATE INCREASED
     Route: 048
     Dates: start: 2012
  18. GLUCOPHAGE [Concomitant]
     Active Substance: METFORMIN HYDROCHLORIDE
     Indication: TYPE 2 DIABETES MELLITUS
     Dosage: UNK
  19. BABY ASPIRIN [Concomitant]
     Active Substance: ASPIRIN
     Indication: HYPERTENSION
     Route: 048
  20. DETROL LA [Concomitant]
     Active Substance: TOLTERODINE TARTRATE
     Indication: HYPERTONIC BLADDER
     Route: 048
     Dates: start: 2007
  21. ARMOUR THYROID [Concomitant]
     Active Substance: THYROID, PORCINE
     Indication: HYPOTHYROIDISM
     Dosage: 30MG, WEEKLY
     Route: 048
  22. VITAMIN D [Concomitant]
     Active Substance: CHOLECALCIFEROL
     Indication: VITAMIN D ABNORMAL
     Route: 048
  23. ARMOUR THYROID [Concomitant]
     Active Substance: THYROID, PORCINE
     Indication: HYPOTHYROIDISM
     Dosage: 60MG, EVERY 6 WEEKS
     Route: 048
     Dates: start: 2012
  24. COREG [Concomitant]
     Active Substance: CARVEDILOL
     Indication: BLOOD PRESSURE ABNORMAL
     Route: 048

REACTIONS (26)
  - Decreased appetite [Not Recovered/Not Resolved]
  - Vomiting [Recovered/Resolved]
  - Hypertonic bladder [Unknown]
  - Balance disorder [Recovered/Resolved]
  - Cyst [Unknown]
  - Hypothyroidism [Unknown]
  - Medical device pain [Recovered/Resolved]
  - Vitamin D deficiency [Unknown]
  - Breast cancer stage I [Unknown]
  - Nausea [Not Recovered/Not Resolved]
  - Hypertension [Unknown]
  - Blood cholesterol increased [Unknown]
  - Memory impairment [Recovering/Resolving]
  - Type 2 diabetes mellitus [Unknown]
  - Premature menopause [Unknown]
  - Heart rate increased [Recovered/Resolved]
  - Feeling abnormal [Recovering/Resolving]
  - Alopecia [Not Recovered/Not Resolved]
  - Off label use [Unknown]
  - Weight increased [Unknown]
  - Diarrhoea [Recovered/Resolved]
  - Gastritis [Unknown]
  - Polyp [Unknown]
  - Abdominal discomfort [Unknown]
  - Confusional state [Recovering/Resolving]
  - Product use in unapproved indication [Unknown]

NARRATIVE: CASE EVENT DATE: 2002
